FAERS Safety Report 23741178 (Version 1)
Quarter: 2024Q2

REPORT INFORMATION
  Report Type: Other
  Country: US (occurrence: None)
  Receive Date: 20240415
  Receipt Date: 20240415
  Transmission Date: 20240716
  Serious: Yes (Hospitalization, Other)
  Sender: FDA-Public Use
  Company Number: US-ROCHE-3540623

PATIENT
  Age: 53 Year
  Sex: Male
  Weight: 80.3 kg

DRUGS (6)
  1. OCREVUS [Suspect]
     Active Substance: OCRELIZUMAB
     Indication: Relapsing multiple sclerosis
     Route: 042
  2. ASPIRIN [Concomitant]
     Active Substance: ASPIRIN
  3. ATORVASTATIN [Concomitant]
     Active Substance: ATORVASTATIN
  4. FLONASE [Concomitant]
     Active Substance: FLUTICASONE PROPIONATE
  5. GABAPENTIN [Concomitant]
     Active Substance: GABAPENTIN
  6. SODIUM CHLORIDE [Concomitant]
     Active Substance: SODIUM CHLORIDE

REACTIONS (8)
  - Cerebrovascular accident [Unknown]
  - White matter lesion [Unknown]
  - Pyrexia [Unknown]
  - Pneumonia [Unknown]
  - COVID-19 [Unknown]
  - Infection [Unknown]
  - Muscular weakness [Unknown]
  - Hypoaesthesia [Unknown]

NARRATIVE: CASE EVENT DATE: 20210201
